FAERS Safety Report 5571908-9 (Version None)
Quarter: 2007Q4

REPORT INFORMATION
  Report Type: 
  Country: None (occurrence: None)
  Receive Date: 20071221
  Receipt Date: 20071217
  Transmission Date: 20080405
  Serious: Yes (Other)
  Sender: FDA-Public Use
  Company Number: US-GENENTECH-252951

PATIENT
  Age: 68 Year
  Sex: Male

DRUGS (1)
  1. RITUXAN [Suspect]
     Indication: ANAEMIA HAEMOLYTIC AUTOIMMUNE

REACTIONS (1)
  - NON-HODGKIN'S LYMPHOMA [None]
